FAERS Safety Report 22041047 (Version 1)
Quarter: 2023Q1

REPORT INFORMATION
  Report Type: Spontaneous
  Country: US (occurrence: US)
  Receive Date: 20230227
  Receipt Date: 20230227
  Transmission Date: 20230418
  Serious: Yes (Hospitalization)
  Sender: FDA-Public Use
  Company Number: US-ELI_LILLY_AND_COMPANY-US202302010905

PATIENT
  Age: 52 Year
  Sex: Female

DRUGS (3)
  1. MOUNJARO [Suspect]
     Active Substance: TIRZEPATIDE
     Indication: Weight decreased
     Dosage: 2.5 MG, UNKNOWN
     Route: 058
     Dates: start: 202211
  2. MOUNJARO [Suspect]
     Active Substance: TIRZEPATIDE
     Dosage: 2.5 MG, UNKNOWN
     Route: 058
     Dates: end: 20230214
  3. MOUNJARO [Suspect]
     Active Substance: TIRZEPATIDE
     Indication: Weight decreased
     Dosage: 5 MG, UNKNOWN
     Route: 058

REACTIONS (13)
  - Dehydration [Recovered/Resolved]
  - Vomiting [Recovered/Resolved]
  - Diarrhoea [Recovered/Resolved]
  - Gastroenteritis viral [Recovered/Resolved]
  - Expired product administered [Unknown]
  - Off label use [Unknown]
  - Illness [Recovered/Resolved]
  - Blood pressure decreased [Recovered/Resolved]
  - Asthenia [Recovered/Resolved]
  - Vomiting [Recovered/Resolved]
  - Diarrhoea [Recovered/Resolved]
  - Flatulence [Recovered/Resolved]
  - Product dose omission issue [Unknown]

NARRATIVE: CASE EVENT DATE: 20221101
